FAERS Safety Report 10151456 (Version 2)
Quarter: 2014Q2

REPORT INFORMATION
  Report Type: Spontaneous
  Country: US (occurrence: US)
  Receive Date: 20140502
  Receipt Date: 20140502
  Transmission Date: 20141212
  Serious: Yes (Life-Threatening, Hospitalization, Other)
  Sender: FDA-Public Use
  Company Number: US-B.I. PHARMACEUTICALS,INC./RIDGEFIELD-2013-BI-37006BP

PATIENT
  Sex: Male
  Weight: 88.9 kg

DRUGS (23)
  1. PRADAXA [Suspect]
     Indication: CARDIOVASCULAR EVENT PROPHYLAXIS
     Dosage: 300 MG
     Route: 065
     Dates: start: 20120510, end: 20120604
  2. PRADAXA [Suspect]
     Indication: THROMBOSIS PROPHYLAXIS
  3. PRADAXA [Suspect]
     Indication: ATRIAL FIBRILLATION
  4. ALLOPURINOL [Concomitant]
     Route: 065
  5. BETA-CAROTENE [Concomitant]
     Route: 065
  6. COENZYME Q-10 [Concomitant]
     Route: 065
  7. COREG [Concomitant]
     Route: 065
  8. ECOTRIN [Concomitant]
     Dosage: 81 MG
     Route: 065
  9. VITAMIN C [Concomitant]
     Route: 065
  10. FLAXSEED [Concomitant]
     Route: 065
  11. FLOMAX [Concomitant]
     Dosage: 0.4 MG
     Route: 065
  12. GINGKO [Concomitant]
     Route: 065
  13. LASIX [Concomitant]
     Route: 065
  14. LECITHIN [Concomitant]
     Route: 065
  15. LIPITOR [Concomitant]
     Dosage: 20 MG
     Route: 065
  16. MULTIVITAMINS [Concomitant]
     Route: 065
  17. NIACIN [Concomitant]
     Dosage: 250 MG
     Route: 065
  18. NITROGLYCERIN [Concomitant]
     Route: 065
  19. PROSCAR [Concomitant]
     Dosage: 5 MG
     Route: 065
  20. VITAMIN A [Concomitant]
     Route: 065
  21. VITAMIN B6 [Concomitant]
     Route: 065
  22. VITAMIN D [Concomitant]
     Route: 065
  23. VITAMIN E [Concomitant]
     Route: 065

REACTIONS (8)
  - Lower gastrointestinal haemorrhage [Recovered/Resolved]
  - Anaemia [Unknown]
  - Renal failure acute [Recovered/Resolved]
  - Coagulopathy [Recovered/Resolved]
  - Hypovolaemic shock [Unknown]
  - Ischaemic hepatitis [Recovered/Resolved]
  - Acute myocardial infarction [Unknown]
  - Thrombocytopenia [Recovered/Resolved]
